FAERS Safety Report 5833130-8 (Version None)
Quarter: 2008Q3

REPORT INFORMATION
  Report Type: 
  Country: None (occurrence: None)
  Receive Date: 20080731
  Receipt Date: 20080716
  Transmission Date: 20090109
  Serious: Yes (Disabling)
  Sender: FDA-Public Use
  Company Number: 2008AL008359

PATIENT
  Age: 87 Year
  Sex: Female
  Weight: 35.8342 kg

DRUGS (1)
  1. DIGOXIN [Suspect]
     Indication: ARRHYTHMIA
     Dosage: 0.125MG, DAILY, PO
     Route: 048
     Dates: start: 20080303, end: 20080505

REACTIONS (7)
  - ACTIVITIES OF DAILY LIVING IMPAIRED [None]
  - ARTHRALGIA [None]
  - DYSSTASIA [None]
  - FALL [None]
  - NAUSEA [None]
  - WEIGHT DECREASED [None]
  - WHEELCHAIR USER [None]
